FAERS Safety Report 4734554-2 (Version None)
Quarter: 2005Q3

REPORT INFORMATION
  Report Type: 
  Country: None (occurrence: None)
  Receive Date: 20050802
  Receipt Date: 20050721
  Transmission Date: 20060218
  Serious: Yes (Hospitalization)
  Sender: FDA-Public Use
  Company Number: 187449

PATIENT
  Age: 63 Year
  Sex: Female
  Weight: 63.5036 kg

DRUGS (3)
  1. AVONEX [Suspect]
     Indication: MULTIPLE SCLEROSIS
     Dosage: 30 UG; QW; IM
     Route: 030
     Dates: end: 20030101
  2. BACLOFEN [Concomitant]
  3. KLONOPIN [Concomitant]

REACTIONS (3)
  - FATIGUE [None]
  - HYPOKALAEMIA [None]
  - INCOHERENT [None]
